FAERS Safety Report 24201757 (Version 2)
Quarter: 2024Q3

REPORT INFORMATION
  Report Type: Report from Study
  Country: IN (occurrence: IN)
  Receive Date: 20240812
  Receipt Date: 20240813
  Transmission Date: 20241017
  Serious: Yes (Hospitalization, Other)
  Sender: INCYTE
  Company Number: IN-002147023-NVSC2022IN067733

PATIENT

DRUGS (6)
  1. RUXOLITINIB [Suspect]
     Active Substance: RUXOLITINIB
     Indication: Primary myelofibrosis
     Dosage: 5 MG, BID
     Route: 048
     Dates: start: 20220301
  2. RUXOLITINIB [Suspect]
     Active Substance: RUXOLITINIB
     Indication: Janus kinase 2 mutation
     Dosage: 5 MG, BID
     Route: 048
     Dates: start: 20220307
  3. RUXOLITINIB [Suspect]
     Active Substance: RUXOLITINIB
     Dosage: 5 MG, BID
     Route: 048
     Dates: start: 20220309
  4. RUXOLITINIB [Suspect]
     Active Substance: RUXOLITINIB
     Dosage: 5 MG, BID
     Route: 048
     Dates: start: 20220820
  5. RUXOLITINIB [Suspect]
     Active Substance: RUXOLITINIB
     Dosage: 5 MG, QD
     Route: 048
     Dates: start: 20230517
  6. ASPIRIN [Concomitant]
     Active Substance: ASPIRIN
     Indication: Product used for unknown indication
     Dosage: 75 MG
     Route: 065

REACTIONS (22)
  - Dengue fever [Recovering/Resolving]
  - Coma [Recovering/Resolving]
  - Pneumonia [Unknown]
  - Blood glucose decreased [Unknown]
  - Hypotension [Unknown]
  - Intra-abdominal fluid collection [Unknown]
  - Tuberculosis [Recovering/Resolving]
  - Insomnia [Recovering/Resolving]
  - Feeling cold [Recovering/Resolving]
  - Nail discolouration [Recovering/Resolving]
  - Asthenia [Recovering/Resolving]
  - Platelet count increased [Recovering/Resolving]
  - Gingival bleeding [Unknown]
  - Gait disturbance [Recovering/Resolving]
  - Haemoglobin decreased [Recovering/Resolving]
  - White blood cell count increased [Recovering/Resolving]
  - Product use issue [Not Recovered/Not Resolved]
  - Inappropriate schedule of product administration [Unknown]
  - Hypoacusis [Unknown]
  - Infection [Unknown]
  - Amnesia [Unknown]
  - Red blood cell count increased [Unknown]

NARRATIVE: CASE EVENT DATE: 20220309
